FAERS Safety Report 13180562 (Version 1)
Quarter: 2017Q1

REPORT INFORMATION
  Report Type: Spontaneous
  Country: DE (occurrence: DE)
  Receive Date: 20170202
  Receipt Date: 20170202
  Transmission Date: 20170428
  Serious: Yes (Other)
  Sender: FDA-Public Use
  Company Number: DE-ALLERGAN-1700149US

PATIENT
  Age: 48 Year
  Sex: Female

DRUGS (1)
  1. LUMIGAN [Suspect]
     Active Substance: BIMATOPROST
     Indication: GLAUCOMA
     Dosage: 1 GTT, QD
     Route: 047
     Dates: start: 2007, end: 201701

REACTIONS (3)
  - Keratopathy [Unknown]
  - Corneal deposits [Unknown]
  - Eye disorder [Unknown]

NARRATIVE: CASE EVENT DATE: 201511
